FAERS Safety Report 9060528 (Version 1)
Quarter: 2013Q1

REPORT INFORMATION
  Report Type: Spontaneous
  Country: US (occurrence: US)
  Receive Date: 20130212
  Receipt Date: 20130212
  Transmission Date: 20140127
  Serious: Yes (Death, Hospitalization)
  Sender: FDA-Public Use
  Company Number: US-MUTUAL PHARMACEUTICAL COMPANY, INC.-IBPF20130008

PATIENT
  Sex: Male

DRUGS (1)
  1. IBUPROFEN [Suspect]
     Indication: PATENT DUCTUS ARTERIOSUS
     Route: 065

REACTIONS (11)
  - Respiratory failure [Fatal]
  - Necrotising colitis [Fatal]
  - Necrotising fasciitis [Fatal]
  - Large intestine perforation [Fatal]
  - Arrhythmia [Fatal]
  - Atrioventricular block second degree [Fatal]
  - Apnoea [Fatal]
  - Abdominal distension [Fatal]
  - Pneumatosis [Fatal]
  - Renal failure [Fatal]
  - Vomiting [Fatal]
